FAERS Safety Report 7332272-8 (Version None)
Quarter: 2011Q1

REPORT INFORMATION
  Report Type: 
  Country: None (occurrence: None)
  Receive Date: 20110222
  Receipt Date: 20110208
  Transmission Date: 20110831
  Serious: Yes (Hospitalization, Other)
  Sender: FDA-Public Use
  Company Number: 20109843

PATIENT
  Age: 67 Year
  Sex: Male

DRUGS (1)
  1. GABALON INTRATHECAL (BACLOFEN INJECTION) [Suspect]
     Indication: MUSCLE SPASTICITY
     Dosage: DAILY, INTRATHECAL
     Route: 037

REACTIONS (2)
  - LOSS OF CONSCIOUSNESS [None]
  - MENINGITIS BACTERIAL [None]
